FAERS Safety Report 5908549-7 (Version None)
Quarter: 2008Q4

REPORT INFORMATION
  Report Type: 
  Country: None (occurrence: None)
  Receive Date: 20081001
  Receipt Date: 20080919
  Transmission Date: 20090506
  Serious: Yes (Death, Hospitalization)
  Sender: FDA-Public Use
  Company Number: GXBR2007US01931

PATIENT
  Age: 70 Year
  Sex: Male
  Weight: 88.6 kg

DRUGS (21)
  1. LOVASTATIN [Suspect]
     Indication: BLOOD CHOLESTEROL INCREASED
     Dosage: 60 MG, QHS, ORAL
     Route: 048
  2. TELITHROMYCIN (TELITHROMYCIN) [Suspect]
     Indication: PNEUMONIA
     Dosage: 400 MG, QD2SDO,ORAL
     Route: 048
     Dates: start: 20060821, end: 20060101
  3. GENTAMICIN [Suspect]
     Indication: PYREXIA
     Dates: start: 20060901
  4. MIDODRINE HYDROCHLORIDE [Concomitant]
  5. WARFARIN SODIUM [Concomitant]
  6. COREG [Concomitant]
  7. NEPHRO-VITE RX(ASCORBIC ACID, FOLIC ACID, VITAMIN B NOS) [Concomitant]
  8. ZANTAC 150 [Concomitant]
  9. ALLOPURINOL [Concomitant]
  10. ASPIRIN [Concomitant]
  11. HYDRALAZINE HCL [Concomitant]
  12. LASIX [Concomitant]
  13. PHOSSLO (CALCIUM ACETATE) [Concomitant]
  14. PROZAC [Concomitant]
  15. ZESTRIL [Concomitant]
  16. DILTIAZEM [Concomitant]
  17. AVELOX [Concomitant]
  18. OSELTAMIVIR (OSELTAMIVIR) [Concomitant]
  19. PREDNISONE [Concomitant]
  20. FUROSEMIDE [Concomitant]
  21. CLEOCIN (CLINDAMYCIN HYDROCHLORIDE) [Concomitant]

REACTIONS (42)
  - ABASIA [None]
  - ACUTE MYOCARDIAL INFARCTION [None]
  - ANAEMIA [None]
  - ANXIETY [None]
  - ATRIAL FLUTTER [None]
  - CARDIAC FAILURE CONGESTIVE [None]
  - CARDIOMEGALY [None]
  - CATHETER SEPSIS [None]
  - DECUBITUS ULCER [None]
  - DEPRESSION [None]
  - DIALYSIS [None]
  - DRUG LEVEL INCREASED [None]
  - DRUG TOXICITY [None]
  - HAEMORRHOIDAL HAEMORRHAGE [None]
  - HALLUCINATION [None]
  - HEPATIC STEATOSIS [None]
  - HEPATITIS [None]
  - HYPERPARATHYROIDISM SECONDARY [None]
  - HYPOPHAGIA [None]
  - HYPOTENSION [None]
  - JOINT DISLOCATION [None]
  - LIVEDO RETICULARIS [None]
  - LIVER INJURY [None]
  - MASTICATION DISORDER [None]
  - MENISCUS LESION [None]
  - MENTAL STATUS CHANGES [None]
  - MUSCLE INJURY [None]
  - MYOPATHY [None]
  - OEDEMA [None]
  - PIGMENTATION DISORDER [None]
  - PLEURAL EFFUSION [None]
  - POTENTIATING DRUG INTERACTION [None]
  - PROCEDURAL HYPOTENSION [None]
  - PYELONEPHRITIS [None]
  - RENAL DISORDER [None]
  - RENAL FAILURE ACUTE [None]
  - RENAL FAILURE CHRONIC [None]
  - RESPIRATORY DISTRESS [None]
  - RHABDOMYOLYSIS [None]
  - STAPHYLOCOCCAL SEPSIS [None]
  - UNRESPONSIVE TO STIMULI [None]
  - VIRAL INFECTION [None]
